FAERS Safety Report 10039698 (Version 1)
Quarter: 2014Q1

REPORT INFORMATION
  Report Type: Report from Study
  Country: GB (occurrence: GB)
  Receive Date: 20140326
  Receipt Date: 20140326
  Transmission Date: 20141002
  Serious: Yes (Hospitalization)
  Sender: FDA-Public Use
  Company Number: GB-GILEAD-2014-0097543

PATIENT
  Age: 57 Year
  Sex: Male
  Weight: 67.4 kg

DRUGS (9)
  1. TENOFOVIR DISOPROXIL FUMARATE [Suspect]
     Indication: HIV INFECTION
     Dosage: 300 MG, UNK
     Route: 048
     Dates: start: 20060706
  2. DARUNAVIR [Suspect]
     Indication: HIV INFECTION
     Dosage: 800 MG, UNK
     Route: 048
     Dates: start: 20131122
  3. ETRAVIRINE [Suspect]
     Indication: HIV INFECTION
     Dosage: 400 MG, QD
     Route: 048
     Dates: start: 20131122
  4. RITONAVIR [Suspect]
     Indication: HIV INFECTION
     Dosage: 100 MG, UNK
     Route: 048
     Dates: start: 20050213
  5. ADCAL                              /07357001/ [Concomitant]
     Indication: OSTEOPOROSIS
     Dosage: UNK
     Route: 048
  6. MESALAZINE [Concomitant]
     Indication: DYSPHAGIA
     Dosage: 800 MG, UNK
     Route: 048
     Dates: start: 201306
  7. MESALAZINE [Concomitant]
     Indication: DYSPEPSIA
  8. ESOMEPRAZOLE [Concomitant]
     Indication: DYSPHAGIA
     Dosage: 20 MG, UNK
     Dates: start: 201109
  9. ESOMEPRAZOLE [Concomitant]
     Indication: DYSPEPSIA

REACTIONS (1)
  - Orchitis [Recovered/Resolved with Sequelae]
